FAERS Safety Report 20899405 (Version 3)
Quarter: 2023Q1

REPORT INFORMATION
  Report Type: Spontaneous
  Country: JP (occurrence: JP)
  Receive Date: 20220601
  Receipt Date: 20230223
  Transmission Date: 20230417
  Serious: Yes (Death, Other)
  Sender: FDA-Public Use
  Company Number: JP-BRISTOL-MYERS SQUIBB COMPANY-2022-050315

PATIENT
  Age: 82 Year
  Sex: Male

DRUGS (5)
  1. VIDAZA [Suspect]
     Active Substance: AZACITIDINE
     Indication: Acute myeloid leukaemia
  2. VIDAZA [Suspect]
     Active Substance: AZACITIDINE
  3. VIDAZA [Suspect]
     Active Substance: AZACITIDINE
  4. VENETOCLAX [Concomitant]
     Active Substance: VENETOCLAX
     Indication: Acute myeloid leukaemia
  5. VENETOCLAX [Concomitant]
     Active Substance: VENETOCLAX

REACTIONS (3)
  - Pseudomonas infection [Fatal]
  - Sepsis [Fatal]
  - Febrile neutropenia [Unknown]
